FAERS Safety Report 8503251-X (Version None)
Quarter: 2012Q3

REPORT INFORMATION
  Report Type: 
  Country: None (occurrence: None)
  Receive Date: 20120711
  Receipt Date: 20120706
  Transmission Date: 20120928
  Serious: No
  Sender: FDA-Public Use
  Company Number: US-PFIZER INC-2012162406

PATIENT
  Age: 39 Year
  Sex: Female

DRUGS (1)
  1. LYRICA [Suspect]
     Indication: FIBROMYALGIA
     Dosage: 150 MG, 3X/DAY

REACTIONS (6)
  - APHASIA [None]
  - WEIGHT INCREASED [None]
  - EUPHORIC MOOD [None]
  - FEMALE ORGASMIC DISORDER [None]
  - IRRITABILITY [None]
  - THERAPEUTIC RESPONSE UNEXPECTED [None]
